FAERS Safety Report 17870476 (Version 1)
Quarter: 2020Q2

REPORT INFORMATION
  Report Type: Spontaneous
  Country: US (occurrence: US)
  Receive Date: 20200606
  Receipt Date: 20200606
  Transmission Date: 20200714
  Serious: Yes (Other)
  Sender: FDA-Public Use
  Company Number: None

PATIENT
  Age: 49 Year
  Sex: Female
  Weight: 90 kg

DRUGS (10)
  1. MAGNESIUM ASPOROTATE [Concomitant]
  2. VIT D [Concomitant]
     Active Substance: VITAMIN D NOS
  3. METFORMIN [Concomitant]
     Active Substance: METFORMIN HYDROCHLORIDE
  4. VITAMIN C [Concomitant]
     Active Substance: ASCORBIC ACID
  5. CLAIRITIN [Concomitant]
  6. PROPRANOLOL ER 120MG CAPSULE [Suspect]
     Active Substance: PROPRANOLOL HYDROCHLORIDE
     Indication: HYPERTENSION
     Dosage: ?          QUANTITY:30 CAPSULE(S);?
     Route: 048
  7. LOSARTAN 50 MG [Concomitant]
     Active Substance: LOSARTAN
  8. NAPROXEN. [Concomitant]
     Active Substance: NAPROXEN
  9. BREO ELLIPTA [Concomitant]
     Active Substance: FLUTICASONE FUROATE\VILANTEROL TRIFENATATE
  10. NETTLE [Concomitant]
     Active Substance: URTICA DIOICA POLLEN

REACTIONS (2)
  - Headache [None]
  - Product substitution issue [None]

NARRATIVE: CASE EVENT DATE: 20200606
